FAERS Safety Report 19267238 (Version 3)
Quarter: 2021Q2

REPORT INFORMATION
  Report Type: Report from Study
  Country: None (occurrence: AU)
  Receive Date: 20210518
  Receipt Date: 20210525
  Transmission Date: 20210717
  Serious: Yes (Death, Hospitalization)
  Sender: FDA-Public Use
  Company Number: AU-ABBVIE-21K-008-3790041-00

PATIENT
  Age: 70 Year
  Sex: Female

DRUGS (2)
  1. DUODOPA [Suspect]
     Active Substance: CARBIDOPA\LEVODOPA
     Indication: PARKINSON^S DISEASE
     Dosage: DOSE DECREASED
     Route: 050
     Dates: start: 20200527, end: 2020
  2. DUODOPA [Suspect]
     Active Substance: CARBIDOPA\LEVODOPA
     Dosage: DOSE DECREASED
     Route: 050
     Dates: start: 20200604

REACTIONS (5)
  - Off label use of device [Unknown]
  - Pneumonia [Unknown]
  - Device dislocation [Unknown]
  - Death [Fatal]
  - Aspiration [Not Recovered/Not Resolved]

NARRATIVE: CASE EVENT DATE: 2021
